FAERS Safety Report 4781450-0 (Version None)
Quarter: 2005Q3

REPORT INFORMATION
  Report Type: 
  Country: None (occurrence: None)
  Receive Date: 20050928
  Receipt Date: 20050915
  Transmission Date: 20060218
  Serious: Yes (Death, Hospitalization)
  Sender: FDA-Public Use
  Company Number: US-AMGEN-US150446

PATIENT
  Sex: Male

DRUGS (17)
  1. ENBREL [Suspect]
     Indication: RHEUMATOID ARTHRITIS
     Route: 058
     Dates: start: 20030101, end: 20050725
  2. HYDROXYCHLOROQUINE SULFATE [Concomitant]
     Route: 048
     Dates: start: 19870601, end: 20040401
  3. NEURONTIN [Concomitant]
     Dates: start: 19991201, end: 20050725
  4. VICODIN ES [Concomitant]
     Dates: start: 19990101, end: 20050725
  5. ACTONEL [Concomitant]
     Dates: start: 20020401, end: 20050725
  6. VITAMIN B-12 [Concomitant]
     Dates: start: 20050501, end: 20050725
  7. DILANTIN [Concomitant]
     Dates: start: 20030201, end: 20050725
  8. PAXIL [Concomitant]
     Dates: start: 19991201, end: 20050725
  9. PRILOSEC [Concomitant]
     Dates: start: 19980201, end: 20050725
  10. FOLIC ACID [Concomitant]
     Dates: start: 20040101, end: 20050725
  11. SINEMET [Concomitant]
     Dates: start: 19991201, end: 20050725
  12. LASIX [Concomitant]
     Dates: start: 20041101, end: 20050725
  13. OS-CAL [Concomitant]
     Dates: end: 20050725
  14. MULTI-VITAMINS [Concomitant]
  15. DURAGESIC-100 [Concomitant]
     Route: 062
     Dates: start: 20041101, end: 20050725
  16. ALTACE [Concomitant]
     Dates: end: 20050101
  17. SINEMET [Concomitant]

REACTIONS (4)
  - ATELECTASIS [None]
  - CARDIAC FAILURE CONGESTIVE [None]
  - CARDIOMYOPATHY [None]
  - CONDITION AGGRAVATED [None]
